FAERS Safety Report 8170128-1 (Version None)
Quarter: 2012Q1

REPORT INFORMATION
  Report Type: 
  Country: None (occurrence: None)
  Receive Date: 20120228
  Receipt Date: 20120217
  Transmission Date: 20120608
  Serious: Yes (Other)
  Sender: FDA-Public Use
  Company Number: PHHY2012BR015712

PATIENT
  Sex: Female

DRUGS (1)
  1. DIOVAN [Suspect]
     Dosage: 80 MG, UNK

REACTIONS (6)
  - ANXIETY [None]
  - HYPERSENSITIVITY [None]
  - BLOOD PRESSURE SYSTOLIC INCREASED [None]
  - LABYRINTHITIS [None]
  - THYROID DISORDER [None]
  - COUGH [None]
